FAERS Safety Report 5858728-2 (Version None)
Quarter: 2008Q3

REPORT INFORMATION
  Report Type: 
  Country: None (occurrence: None)
  Receive Date: 20080826
  Receipt Date: 20080813
  Transmission Date: 20090109
  Serious: No
  Sender: FDA-Public Use
  Company Number: US-BOEHRINGER INGELHEIM GMBH, GERMANY-2008-BP-12803BP

PATIENT
  Age: 80 Year
  Sex: Male

DRUGS (1)
  1. SPIRIVA [Suspect]
     Indication: EMPHYSEMA
     Route: 055

REACTIONS (1)
  - LARYNGITIS [None]
